FAERS Safety Report 10723084 (Version 2)
Quarter: 2015Q3

REPORT INFORMATION
  Report Type: Spontaneous
  Country: US (occurrence: US)
  Receive Date: 20150120
  Receipt Date: 20150728
  Transmission Date: 20151125
  Serious: Yes (Other)
  Sender: FDA-Public Use
  Company Number: US-ELI_LILLY_AND_COMPANY-US201401008962

PATIENT
  Sex: Female

DRUGS (23)
  1. CYMBALTA [Suspect]
     Active Substance: DULOXETINE HYDROCHLORIDE
     Dosage: 60 MG, QD
     Route: 065
     Dates: start: 20111115, end: 201303
  2. FISH OIL [Concomitant]
     Active Substance: FISH OIL
  3. NEXIUM [Concomitant]
     Active Substance: ESOMEPRAZOLE MAGNESIUM
  4. PROPANOLOL                         /00030001/ [Concomitant]
     Active Substance: PROPRANOLOL HYDROCHLORIDE
  5. ZANTAC [Concomitant]
     Active Substance: RANITIDINE HYDROCHLORIDE
  6. S-ADENOSYLMETHIONINE SULFATE P-TOLUENESULFONATE [Concomitant]
     Active Substance: ADEMETIONINE SULFATE TOSILATE
  7. CYMBALTA [Suspect]
     Active Substance: DULOXETINE HYDROCHLORIDE
     Dosage: 30 MG, QD
     Route: 065
     Dates: start: 20091009
  8. LEVSIN [Concomitant]
     Active Substance: HYOSCYAMINE SULFATE
  9. LIPITOR [Concomitant]
     Active Substance: ATORVASTATIN CALCIUM
  10. FLONASE                            /00908302/ [Concomitant]
  11. CYMBALTA [Suspect]
     Active Substance: DULOXETINE HYDROCHLORIDE
     Indication: ANXIETY
     Dosage: 60 MG, QD
     Route: 065
     Dates: start: 200802
  12. CYMBALTA [Suspect]
     Active Substance: DULOXETINE HYDROCHLORIDE
     Dosage: 30 MG, QD
     Route: 065
     Dates: start: 20110308
  13. VALIUM [Concomitant]
     Active Substance: DIAZEPAM
  14. LEVOXYL [Concomitant]
     Active Substance: LEVOTHYROXINE SODIUM
  15. FOSAMAX [Concomitant]
     Active Substance: ALENDRONATE SODIUM
  16. MULTI VIT [Concomitant]
  17. OMEPRAZOLE. [Concomitant]
     Active Substance: OMEPRAZOLE
  18. CYMBALTA [Suspect]
     Active Substance: DULOXETINE HYDROCHLORIDE
     Indication: DEPRESSION
     Dosage: 30 MG, QD
     Route: 065
     Dates: start: 200802
  19. CYMBALTA [Suspect]
     Active Substance: DULOXETINE HYDROCHLORIDE
     Dosage: 60 MG, QD
     Route: 065
     Dates: start: 20100323
  20. AMBIEN [Concomitant]
     Active Substance: ZOLPIDEM TARTRATE
  21. SKELAXIN [Concomitant]
     Active Substance: METAXALONE
  22. FLUOXETINE [Concomitant]
     Active Substance: FLUOXETINE\FLUOXETINE HYDROCHLORIDE
  23. CARAFATE [Concomitant]
     Active Substance: SUCRALFATE

REACTIONS (4)
  - Dizziness [Unknown]
  - Suicidal ideation [Unknown]
  - Psychotic behaviour [Unknown]
  - Drug withdrawal syndrome [Unknown]
